FAERS Safety Report 6060652-X (Version None)
Quarter: 2009Q1

REPORT INFORMATION
  Report Type: 
  Country: None (occurrence: None)
  Receive Date: 20090202
  Receipt Date: 20090123
  Transmission Date: 20090719
  Serious: Yes (Hospitalization, Other)
  Sender: FDA-Public Use
  Company Number: US-KINGPHARMUSA00001-K200801398

PATIENT
  Sex: Female

DRUGS (3)
  1. CORGARD [Suspect]
     Indication: VENTRICULAR TACHYCARDIA
     Dosage: 80 MG, QD
     Route: 048
     Dates: start: 20060101
  2. PREVISCAN                          /00261401/ [Concomitant]
  3. AMIODARONE [Concomitant]

REACTIONS (12)
  - ASTHENIA [None]
  - BRADYCARDIA [None]
  - CONVULSION [None]
  - COUGH [None]
  - DIZZINESS [None]
  - FACE OEDEMA [None]
  - HEADACHE [None]
  - HYPERHIDROSIS [None]
  - HYPOGLYCAEMIA [None]
  - HYPOGLYCAEMIC COMA [None]
  - PALLOR [None]
  - PERIPHERAL COLDNESS [None]
